FAERS Safety Report 11872671 (Version 2)
Quarter: 2016Q1

REPORT INFORMATION
  Report Type: Spontaneous
  Country: US (occurrence: US)
  Receive Date: 20151228
  Receipt Date: 20160324
  Transmission Date: 20160526
  Serious: No
  Sender: FDA-Public Use
  Company Number: US-CELGENEUS-USA-2015123999

PATIENT
  Age: 57 Year
  Sex: Female

DRUGS (2)
  1. OTEZLA [Suspect]
     Active Substance: APREMILAST
     Indication: PSORIATIC ARTHROPATHY
     Route: 048
     Dates: start: 201410, end: 201511
  2. OTEZLA [Suspect]
     Active Substance: APREMILAST
     Route: 048
     Dates: start: 201512

REACTIONS (3)
  - Upper respiratory tract infection [Recovered/Resolved]
  - Gastric disorder [Recovered/Resolved]
  - Joint stabilisation [Recovered/Resolved]

NARRATIVE: CASE EVENT DATE: 20151129
